FAERS Safety Report 17560314 (Version 1)
Quarter: 2020Q1

REPORT INFORMATION
  Report Type: Spontaneous
  Country: RU (occurrence: RU)
  Receive Date: 20200319
  Receipt Date: 20200319
  Transmission Date: 20200409
  Serious: Yes (Hospitalization)
  Sender: FDA-Public Use
  Company Number: NVSC2020RU077680

PATIENT
  Age: 66 Year
  Sex: Male
  Weight: 110 kg

DRUGS (6)
  1. MILGAMMA [Concomitant]
     Indication: PRODUCT USED FOR UNKNOWN INDICATION
     Dosage: 1 ML, BID
     Route: 030
     Dates: start: 20200227, end: 20200302
  2. VOLTAREN [Suspect]
     Active Substance: DICLOFENAC SODIUM
     Indication: HIP DEFORMITY
     Dosage: 75 MG, QD (75MG/3ML)
     Route: 030
     Dates: start: 20200228, end: 20200302
  3. VOLTAREN [Suspect]
     Active Substance: DICLOFENAC SODIUM
     Indication: SPINAL OSTEOARTHRITIS
  4. VOLTAREN [Suspect]
     Active Substance: DICLOFENAC SODIUM
     Indication: PAIN
  5. ARTRIDOL [Concomitant]
     Indication: PRODUCT USED FOR UNKNOWN INDICATION
     Dosage: 100 MG, QD
     Route: 030
     Dates: start: 20200228, end: 20200302
  6. WATER FOR INJECTIONS [Concomitant]
     Active Substance: WATER
     Indication: PRODUCT USED FOR UNKNOWN INDICATION
     Dosage: 2 ML, QD
     Route: 030
     Dates: start: 20200227, end: 20200302

REACTIONS (4)
  - Acute kidney injury [Not Recovered/Not Resolved]
  - Anuria [Not Recovered/Not Resolved]
  - Pyrexia [Not Recovered/Not Resolved]
  - Arthralgia [Not Recovered/Not Resolved]

NARRATIVE: CASE EVENT DATE: 20200305
